FAERS Safety Report 4355809-X (Version None)
Quarter: 2004Q2

REPORT INFORMATION
  Report Type: 
  Country: None (occurrence: None)
  Receive Date: 20040505
  Receipt Date: 20040426
  Transmission Date: 20050107
  Serious: Yes (Life-Threatening)
  Sender: FDA-Public Use
  Company Number: USA-2002-0001443

PATIENT
  Age: 57 Year
  Sex: Female

DRUGS (8)
  1. UNIPHYL [Suspect]
     Indication: ASTHMA
     Dosage: 600 MG, DAILY, ORAL
     Route: 048
     Dates: start: 20020607
  2. VERAPAMIL [Concomitant]
  3. ACETAMINOPHEN [Concomitant]
  4. DYRENIUM (TRIAMTERENE) [Concomitant]
  5. INTAL [Concomitant]
  6. MAXAIR [Concomitant]
  7. ASTHMAHALER (EPINEPHRINE BITARTRATE) [Concomitant]
  8. BACTOBAN (MUPIROCIN) [Concomitant]

REACTIONS (8)
  - BRONCHIAL IRRITATION [None]
  - BRONCHOSPASM [None]
  - DIZZINESS [None]
  - DRUG INEFFECTIVE [None]
  - FATIGUE [None]
  - INFLAMMATION [None]
  - SWOLLEN TONGUE [None]
  - THROMBOSIS [None]
